FAERS Safety Report 16622601 (Version 1)
Quarter: 2019Q3

REPORT INFORMATION
  Report Type: Spontaneous
  Country: NL (occurrence: NL)
  Receive Date: 20190723
  Receipt Date: 20190723
  Transmission Date: 20191004
  Serious: Yes (Hospitalization)
  Sender: FDA-Public Use
  Company Number: NL-TEVA-2019-NL-1081100

PATIENT
  Age: 77 Year
  Sex: Female
  Weight: 92 kg

DRUGS (13)
  1. OXYCODON MGA [Concomitant]
     Dosage: 2DD5MG
     Route: 065
     Dates: start: 20190219
  2. METAMIZOL [Concomitant]
     Active Substance: METAMIZOLE SODIUM
     Dosage: 4DD, 1000MG
     Route: 065
     Dates: start: 20190313
  3. PREGABALINE [Concomitant]
     Active Substance: PREGABALIN
     Dosage: 1DD75MG
     Route: 065
     Dates: start: 20190221
  4. OXYCODON [Concomitant]
     Active Substance: OXYCODONE
     Dosage: ZN 6DD5MG
     Route: 065
     Dates: start: 20190219
  5. METOPROLOL. [Concomitant]
     Active Substance: METOPROLOL
     Dosage: 1DD, 25MG
     Route: 065
     Dates: start: 20190216
  6. IPRAXA [Concomitant]
     Dosage: ZN 3DD2ML
     Route: 065
     Dates: start: 20190221
  7. VANCOMYCINE POEDER VOOR INFUUS, 1000 MG (MILLIGRAM)VANCOMYCINE PDR V I [Suspect]
     Active Substance: VANCOMYCIN HYDROCHLORIDE
     Indication: WOUND
     Dosage: 2DD, 1000MG
     Route: 065
     Dates: start: 20190313, end: 20190406
  8. GRANISETRON [Concomitant]
     Active Substance: GRANISETRON
     Dosage: ZN 2DD1MG
     Route: 065
     Dates: start: 20190219
  9. TEMAZEPAM. [Concomitant]
     Active Substance: TEMAZEPAM
     Dosage: ZN 1DD10MG
     Route: 065
     Dates: start: 20190217
  10. PANTOPRAZOL [Concomitant]
     Active Substance: PANTOPRAZOLE SODIUM
     Dosage: 1DD, 40MG
     Route: 065
     Dates: start: 20190314
  11. PARACETAMOL [Concomitant]
     Active Substance: ACETAMINOPHEN
     Dosage: 4DD, 1000MG
     Route: 065
     Dates: start: 20190304
  12. PSYLLIUMVEZELS [Concomitant]
     Dosage: ZN 3DD1SACHET, 1 DF
     Route: 065
     Dates: start: 20190311
  13. FRAXIPARINE [Concomitant]
     Active Substance: NADROPARIN CALCIUM
     Dosage: 1DD, 2850IE
     Route: 065
     Dates: start: 20190216

REACTIONS (4)
  - Rash erythematous [Recovered/Resolved]
  - Pyrexia [Recovered/Resolved]
  - Rash pruritic [Recovered/Resolved]
  - Oedema [Recovered/Resolved]

NARRATIVE: CASE EVENT DATE: 20190406
